FAERS Safety Report 13385057 (Version 1)
Quarter: 2017Q1

REPORT INFORMATION
  Report Type: Spontaneous
  Country: US (occurrence: US)
  Receive Date: 20170329
  Receipt Date: 20170329
  Transmission Date: 20170429
  Serious: Yes (Hospitalization)
  Sender: FDA-Public Use
  Company Number: US-VIFOR (INTERNATIONAL) INC.-VIT-2017-03343

PATIENT
  Sex: Male

DRUGS (14)
  1. METHIMAZOLE. [Concomitant]
     Active Substance: METHIMAZOLE
  2. AMLODIPINE [Concomitant]
     Active Substance: AMLODIPINE BESYLATE
  3. ATORVASTATIN [Concomitant]
     Active Substance: ATORVASTATIN
  4. BENAZEPRIL [Concomitant]
     Active Substance: BENAZEPRIL HYDROCHLORIDE
  5. ERGOCALCIFEROL. [Concomitant]
     Active Substance: ERGOCALCIFEROL
  6. METOPROLOL TARTRATE. [Concomitant]
     Active Substance: METOPROLOL TARTRATE
  7. ACETYLSALICYLIC ACID [Concomitant]
     Active Substance: ASPIRIN
  8. VELTASSA [Suspect]
     Active Substance: PATIROMER
     Indication: HYPERKALAEMIA
     Route: 048
     Dates: start: 201610
  9. GUAIFENESIN. [Concomitant]
     Active Substance: GUAIFENESIN
  10. VIREAD [Concomitant]
     Active Substance: TENOFOVIR DISOPROXIL FUMARATE
  11. CLOPIDOGREL [Concomitant]
     Active Substance: CLOPIDOGREL BISULFATE
  12. CLINDAMYCIN. [Concomitant]
     Active Substance: CLINDAMYCIN
  13. CALCIUM ACETATE. [Concomitant]
     Active Substance: CALCIUM ACETATE
  14. GLYCERYL TRINITRATE [Concomitant]
     Active Substance: NITROGLYCERIN

REACTIONS (1)
  - Hospitalisation [Unknown]
